FAERS Safety Report 8201753-7 (Version None)
Quarter: 2012Q1

REPORT INFORMATION
  Report Type: 
  Country: None (occurrence: None)
  Receive Date: 20120312
  Receipt Date: 20120308
  Transmission Date: 20120608
  Serious: Yes (Hospitalization, Other)
  Sender: FDA-Public Use
  Company Number: US-PFIZER INC-2012036705

PATIENT
  Sex: Female
  Weight: 71.202 kg

DRUGS (12)
  1. ATORVASTATIN CALCIUM [Suspect]
     Dosage: UNK
  2. ATENOLOL [Concomitant]
     Indication: HYPERTENSION
     Dosage: 50 MG, DAILY
     Route: 048
  3. ACETYLSALICYLIC ACID [Concomitant]
     Indication: ANTICOAGULANT THERAPY
     Dosage: 81 MG, DAILY
     Dates: start: 20120201
  4. AMLODIPINE BESYLATE [Suspect]
     Dosage: UNK
     Route: 048
  5. ATORVASTATIN [Suspect]
     Indication: BLOOD CHOLESTEROL INCREASED
     Dosage: 20 MG, DAILY
     Dates: start: 20110101
  6. AMLODIPINE BESYLATE [Suspect]
     Dosage: 5 MG, UNK
     Route: 048
  7. AMLODIPINE BESYLATE [Suspect]
     Dosage: 10 MG, UNK
     Route: 048
  8. HYDROCHLOROTHIAZIDE [Suspect]
     Dosage: UNK
  9. MONTELUKAST SODIUM [Concomitant]
     Indication: CHRONIC OBSTRUCTIVE PULMONARY DISEASE
     Dosage: UNK, AS NEEDED
  10. PLAVIX [Suspect]
     Dosage: UNK
     Route: 048
     Dates: start: 20110301
  11. LIPITOR [Suspect]
     Indication: BLOOD CHOLESTEROL INCREASED
     Dosage: UNK
     Route: 048
  12. AMLODIPINE BESYLATE [Suspect]
     Indication: HYPERTENSION
     Dosage: 2.5 MG, UNK
     Route: 048

REACTIONS (4)
  - RENAL FAILURE [None]
  - NEPHROPATHY [None]
  - DEHYDRATION [None]
  - BLOOD CHOLESTEROL INCREASED [None]
